FAERS Safety Report 9750141 (Version 1)
Quarter: 2013Q4

REPORT INFORMATION
  Report Type: Spontaneous
  Country: US (occurrence: US)
  Receive Date: 20131212
  Receipt Date: 20131212
  Transmission Date: 20140711
  Serious: No
  Sender: FDA-Public Use
  Company Number: US-GILEAD-US-CVT-090636

PATIENT
  Sex: Female

DRUGS (3)
  1. RANEXA [Suspect]
     Indication: ANGINA PECTORIS
     Route: 048
  2. CARBAMAZEPINE [Concomitant]
  3. PLAVIX [Concomitant]

REACTIONS (4)
  - Contusion [Unknown]
  - Asthenia [Unknown]
  - Dysphagia [Unknown]
  - Tremor [Unknown]
